FAERS Safety Report 4592047-X (Version None)
Quarter: 2005Q1

REPORT INFORMATION
  Report Type: 
  Country: None (occurrence: None)
  Receive Date: 20050225
  Receipt Date: 20050111
  Transmission Date: 20050727
  Serious: Yes (Other)
  Sender: FDA-Public Use
  Company Number: JP-GLAXOSMITHKLINE-B0364730A

PATIENT
  Age: 37 Year
  Sex: Male

DRUGS (3)
  1. EPIVIR [Suspect]
     Indication: HIV INFECTION
     Dosage: 1U TWICE PER DAY
     Route: 048
     Dates: start: 20030324, end: 20040603
  2. ZERIT [Suspect]
     Indication: HIV INFECTION
     Dosage: 2U TWICE PER DAY
     Route: 048
     Dates: start: 19971008, end: 20040603
  3. KALETRA [Suspect]
     Indication: HIV INFECTION
     Dosage: 4U TWICE PER DAY
     Route: 048
     Dates: start: 20020805, end: 20040603

REACTIONS (4)
  - ASCITES [None]
  - GENERALISED OEDEMA [None]
  - LIVER DISORDER [None]
  - PYREXIA [None]
